FAERS Safety Report 15299390 (Version 1)
Quarter: 2018Q3

REPORT INFORMATION
  Report Type: Spontaneous
  Country: US (occurrence: US)
  Receive Date: 20180808
  Receipt Date: 20180808
  Transmission Date: 20181010
  Serious: No
  Sender: FDA-Public Use
  Company Number: None

PATIENT
  Age: 52 Year
  Sex: Male

DRUGS (1)
  1. XTANDI [Suspect]
     Active Substance: ENZALUTAMIDE
     Indication: PROSTATE CANCER
     Route: 048
     Dates: start: 20180713, end: 20180806

REACTIONS (6)
  - Nausea [None]
  - Arthritis [None]
  - Fatigue [None]
  - Headache [None]
  - Vision blurred [None]
  - Back pain [None]

NARRATIVE: CASE EVENT DATE: 20180713
